FAERS Safety Report 19499792 (Version 2)
Quarter: 2021Q3

REPORT INFORMATION
  Report Type: Spontaneous
  Country: US (occurrence: US)
  Receive Date: 20210707
  Receipt Date: 20210707
  Transmission Date: 20211014
  Serious: Yes (Hospitalization, Other)
  Sender: FDA-Public Use
  Company Number: US-CELGENEUS-USA-20210608476

PATIENT
  Age: 67 Year
  Sex: Female

DRUGS (1)
  1. ENASIDENIB [Suspect]
     Active Substance: ENASIDENIB
     Indication: ACUTE MYELOID LEUKAEMIA RECURRENT
     Route: 048
     Dates: start: 201810, end: 201906

REACTIONS (4)
  - Acute myeloid leukaemia [Unknown]
  - Hyperleukocytosis [Unknown]
  - Differentiation syndrome [Unknown]
  - Philadelphia chromosome positive [Unknown]

NARRATIVE: CASE EVENT DATE: 2018
